FAERS Safety Report 20060936 (Version 1)
Quarter: 2021Q4

REPORT INFORMATION
  Report Type: Spontaneous
  Country: BR (occurrence: BR)
  Receive Date: 20211112
  Receipt Date: 20211112
  Transmission Date: 20220303
  Serious: Yes (Other)
  Sender: FDA-Public Use
  Company Number: None

PATIENT
  Age: 48 Year
  Sex: Female

DRUGS (6)
  1. LOSARTAN POTASSIUM [Suspect]
     Active Substance: LOSARTAN POTASSIUM
     Indication: Subarachnoid haemorrhage
     Dosage: 5MG, TWICE A DAY
  2. CIPROFIBRATE [Suspect]
     Active Substance: CIPROFIBRATE
     Indication: Hypertriglyceridaemia
     Dosage: 100 MG (MID (AS REPORTED)
  3. ZOLADEX [Concomitant]
     Active Substance: GOSERELIN ACETATE
     Dosage: UNK
     Dates: start: 20200220
  4. LETROZOLE [Concomitant]
     Active Substance: LETROZOLE
     Dosage: UNK
     Dates: start: 20200220
  5. RIBOCICLIB [Concomitant]
     Active Substance: RIBOCICLIB
     Dosage: UNK
     Dates: start: 20200220
  6. ZOLEDRONIC ACID [Concomitant]
     Active Substance: ZOLEDRONIC ACID
     Dosage: UNK
     Dates: start: 20200220

REACTIONS (2)
  - Electrocardiogram QT prolonged [Unknown]
  - Neutropenia [Unknown]
